FAERS Safety Report 10024059 (Version 4)
Quarter: 2015Q4

REPORT INFORMATION
  Report Type: Spontaneous
  Country: JP (occurrence: JP)
  Receive Date: 20140320
  Receipt Date: 20151111
  Transmission Date: 20160304
  Serious: Yes (Other)
  Sender: FDA-Public Use
  Company Number: JP-PFIZER INC-2014077986

PATIENT
  Age: 11 Month
  Sex: Male

DRUGS (3)
  1. FOSPHENYTOIN SODIUM. [Suspect]
     Active Substance: FOSPHENYTOIN SODIUM
     Dosage: 5.2 MG/KG/DOSE TWICE DAILY ON DAYS 5-12
  2. FOSPHENYTOIN SODIUM. [Suspect]
     Active Substance: FOSPHENYTOIN SODIUM
     Indication: STATUS EPILEPTICUS
     Dosage: 22.5 MG/KG, ON DAY 1
  3. FOSPHENYTOIN SODIUM. [Suspect]
     Active Substance: FOSPHENYTOIN SODIUM
     Dosage: 5.2 MG/KG/DOSE ONCE DAILY ON DAYS 2-4

REACTIONS (3)
  - Product use issue [Unknown]
  - Drug ineffective [Unknown]
  - Anticonvulsant drug level below therapeutic [Unknown]
